FAERS Safety Report 13667709 (Version 1)
Quarter: 2017Q2

REPORT INFORMATION
  Report Type: Spontaneous
  Country: US (occurrence: US)
  Receive Date: 20170620
  Receipt Date: 20170620
  Transmission Date: 20170830
  Serious: Yes (Other)
  Sender: FDA-Public Use
  Company Number: US-TEVA-767104USA

PATIENT
  Sex: Female

DRUGS (1)
  1. TRETINOIN. [Suspect]
     Active Substance: TRETINOIN
     Dosage: 90 MG DAILY
     Route: 065

REACTIONS (2)
  - Idiopathic intracranial hypertension [Unknown]
  - Oedema [Unknown]

NARRATIVE: CASE EVENT DATE: 201705
